FAERS Safety Report 21577607 (Version 1)
Quarter: 2022Q4

REPORT INFORMATION
  Report Type: Spontaneous
  Country: US (occurrence: US)
  Receive Date: 20221110
  Receipt Date: 20221110
  Transmission Date: 20230112
  Serious: No
  Sender: FDA-Public Use
  Company Number: US-AMGEN-USASP2022189831

PATIENT
  Age: 74 Year
  Sex: Female

DRUGS (2)
  1. MVASI [Suspect]
     Active Substance: BEVACIZUMAB-AWWB
     Indication: Endometrial cancer
     Dosage: 1000 MILLIGRAM
     Route: 065
  2. MVASI [Suspect]
     Active Substance: BEVACIZUMAB-AWWB
     Dosage: 1000 MILLIGRAM
     Route: 065

REACTIONS (1)
  - Wound [Recovering/Resolving]

NARRATIVE: CASE EVENT DATE: 20221027
